FAERS Safety Report 4993233-7 (Version None)
Quarter: 2006Q1

REPORT INFORMATION
  Report Type: 
  Country: None (occurrence: None)
  Receive Date: 20060314
  Receipt Date: 20050316
  Transmission Date: 20060701
  Serious: Yes (Other)
  Sender: FDA-Public Use
  Company Number: 200510825BCC

PATIENT
  Age: 69 Year
  Sex: Female
  Weight: 81.6475 kg

DRUGS (6)
  1. ALEVE (CAPLET) [Suspect]
     Indication: ARTHRALGIA
     Dosage: 220 MG, ONCE, ORAL
     Route: 048
     Dates: start: 20050223
  2. EVISTA [Concomitant]
  3. CALCIUM SUPPLEMENT [Concomitant]
  4. GLUCOSAMINE [Concomitant]
  5. ASCORBIC ACID [Concomitant]
  6. MULTIVITAMIN [Concomitant]

REACTIONS (1)
  - HAEMATOCHEZIA [None]
